FAERS Safety Report 10224714 (Version 2)
Quarter: 2014Q2

REPORT INFORMATION
  Report Type: Spontaneous
  Country: ES (occurrence: ES)
  Receive Date: 20140609
  Receipt Date: 20140609
  Transmission Date: 20141212
  Serious: Yes (Hospitalization)
  Sender: FDA-Public Use
  Company Number: ES-009507513-1404ESP003060

PATIENT
  Sex: Female

DRUGS (1)
  1. IVEMEND [Suspect]
     Indication: PROPHYLAXIS OF NAUSEA AND VOMITING
     Dosage: UNK
     Route: 042

REACTIONS (3)
  - Intestinal obstruction [Unknown]
  - Dehydration [Unknown]
  - Off label use [Unknown]
